FAERS Safety Report 9252622 (Version 3)
Quarter: 2013Q3

REPORT INFORMATION
  Report Type: Spontaneous
  Country: BR (occurrence: BR)
  Receive Date: 20130424
  Receipt Date: 20130725
  Transmission Date: 20140515
  Serious: Yes (Hospitalization, Other)
  Sender: FDA-Public Use
  Company Number: BR-ASTRAZENECA-2013SE26291

PATIENT
  Age: 65 Year
  Sex: Female

DRUGS (4)
  1. NEXIUM [Suspect]
     Indication: GASTRITIS
     Route: 048
     Dates: start: 2003
  2. NEXIUM [Suspect]
     Indication: GASTRITIS
     Dosage: 2 TABLETS OF 40 MG AT GASTRIC EPISODES
     Route: 048
     Dates: start: 2003
  3. LIPISTAT [Concomitant]
     Indication: BLOOD CHOLESTEROL INCREASED
  4. MOTILIUM [Concomitant]
     Indication: ABDOMINAL DISCOMFORT

REACTIONS (5)
  - Breast cancer [Unknown]
  - Gastritis [Unknown]
  - Blood glucose increased [Unknown]
  - Nausea [Recovered/Resolved]
  - Intentional drug misuse [Unknown]
